FAERS Safety Report 8281057-7 (Version None)
Quarter: 2012Q2

REPORT INFORMATION
  Report Type: 
  Country: None (occurrence: None)
  Receive Date: 20120412
  Receipt Date: 20120330
  Transmission Date: 20120825
  Serious: Yes (Death, Hospitalization)
  Sender: FDA-Public Use
  Company Number: US-MYLANLABS-2012S1006946

PATIENT
  Age: 37 Year
  Sex: Male

DRUGS (3)
  1. COTRIM [Interacting]
     Route: 065
  2. AZITHROMYCIN [Concomitant]
     Route: 065
  3. METHOTREXATE [Suspect]
     Indication: PSORIASIS
     Dosage: SUSPECTED HIGHER DOSE THAN STATED 20MG
     Route: 042

REACTIONS (11)
  - MUCOSAL INFLAMMATION [None]
  - PANCYTOPENIA [None]
  - SKIN NECROSIS [None]
  - SKIN ULCER [None]
  - HEPATITIS ACUTE [None]
  - DIARRHOEA [None]
  - HYPOTENSION [None]
  - TOXICITY TO VARIOUS AGENTS [None]
  - FEBRILE NEUTROPENIA [None]
  - RENAL FAILURE [None]
  - DRUG INTERACTION [None]
